FAERS Safety Report 16953249 (Version 1)
Quarter: 2019Q4

REPORT INFORMATION
  Report Type: Spontaneous
  Country: CA (occurrence: CA)
  Receive Date: 20191023
  Receipt Date: 20191023
  Transmission Date: 20200122
  Serious: Yes (Hospitalization, Other)
  Sender: FDA-Public Use
  Company Number: CA-PFIZER INC-2019453952

PATIENT
  Age: 7 Year
  Sex: Male
  Weight: 72 kg

DRUGS (1)
  1. PHENYTOIN. [Suspect]
     Active Substance: PHENYTOIN
     Indication: SEIZURE
     Dosage: UNK
     Route: 048

REACTIONS (10)
  - Hepatitis [Recovered/Resolved]
  - International normalised ratio increased [Recovered/Resolved]
  - Rash [Recovered/Resolved]
  - Blood albumin decreased [Recovered/Resolved]
  - Pyrexia [Recovered/Resolved]
  - Pericardial effusion [Recovered/Resolved]
  - Red blood cell sedimentation rate increased [Recovered/Resolved]
  - Rhabdomyolysis [Recovered/Resolved]
  - Serum ferritin increased [Recovered/Resolved]
  - C-reactive protein increased [Recovered/Resolved]
